FAERS Safety Report 14666960 (Version 1)
Quarter: 2018Q1

REPORT INFORMATION
  Report Type: Spontaneous
  Country: FR (occurrence: FR)
  Receive Date: 20180322
  Receipt Date: 20180322
  Transmission Date: 20180509
  Serious: Yes (Hospitalization)
  Sender: FDA-Public Use
  Company Number: FR-CIPLA LTD.-2018FR11826

PATIENT

DRUGS (4)
  1. LEVOFOLINATE                       /06682101/ [Suspect]
     Active Substance: LEVOLEUCOVORIN
     Indication: PRODUCT USED FOR UNKNOWN INDICATION
     Dosage: 200 MG/M2, UNK
     Route: 041
     Dates: start: 20171128, end: 20171128
  2. OXALIPLATINE ACCORD [Concomitant]
     Active Substance: OXALIPLATIN
     Indication: NEOPLASM MALIGNANT
     Dosage: 125 KIU, UNK
     Route: 041
     Dates: start: 20171128, end: 20171128
  3. IRINOTECAN [Suspect]
     Active Substance: IRINOTECAN
     Indication: NEOPLASM MALIGNANT
     Dosage: 280 MG, UNK
     Route: 041
     Dates: start: 20171128, end: 20171128
  4. VECTIBIX [Concomitant]
     Active Substance: PANITUMUMAB
     Indication: NEOPLASM MALIGNANT
     Dosage: 320 MG, UNK
     Route: 041
     Dates: start: 20171128, end: 20171128

REACTIONS (3)
  - Blepharospasm [Recovered/Resolved]
  - Fine motor delay [Recovered/Resolved]
  - Muscle spasms [Recovered/Resolved]

NARRATIVE: CASE EVENT DATE: 20171128
